FAERS Safety Report 7624215-4 (Version None)
Quarter: 2011Q3

REPORT INFORMATION
  Report Type: 
  Country: None (occurrence: None)
  Receive Date: 20110720
  Receipt Date: 20110720
  Transmission Date: 20111222
  Serious: No
  Sender: FDA-Public Use
  Company Number: None

PATIENT
  Age: 9 Year
  Sex: Male
  Weight: 38.555 kg

DRUGS (1)
  1. MALARONE [Suspect]
     Dosage: 250/100
     Dates: start: 20110704, end: 20110711

REACTIONS (9)
  - DYSPNOEA [None]
  - CHEST DISCOMFORT [None]
  - OROPHARYNGEAL PAIN [None]
  - FATIGUE [None]
  - CHILLS [None]
  - THROAT TIGHTNESS [None]
  - ABDOMINAL DISCOMFORT [None]
  - CHEST PAIN [None]
  - ASTHENIA [None]
